FAERS Safety Report 21797706 (Version 4)
Quarter: 2024Q3

REPORT INFORMATION
  Report Type: Spontaneous
  Country: ZA (occurrence: ZA)
  Receive Date: 20221230
  Receipt Date: 20240927
  Transmission Date: 20241016
  Serious: Yes (Hospitalization, Other)
  Sender: AMGEN
  Company Number: ZA-PFIZER INC-PV202200130391

PATIENT
  Age: 39 Year
  Sex: Female

DRUGS (1)
  1. ENBREL [Suspect]
     Active Substance: ETANERCEPT
     Indication: Product used for unknown indication
     Dosage: 50 MG, WEEKLY
     Route: 058
     Dates: start: 20221209

REACTIONS (6)
  - Toe operation [Unknown]
  - Pain in extremity [Unknown]
  - Postoperative wound infection [Unknown]
  - Cough [Unknown]
  - Fungal infection [Unknown]
  - Impaired healing [Unknown]
